FAERS Safety Report 7524428-6 (Version None)
Quarter: 2011Q2

REPORT INFORMATION
  Report Type: 
  Country: None (occurrence: None)
  Receive Date: 20110525
  Receipt Date: 20110511
  Transmission Date: 20111010
  Serious: Yes (Death, Other)
  Sender: FDA-Public Use
  Company Number: 2011-00527

PATIENT
  Age: 76 Year
  Sex: Male
  Weight: 80 kg

DRUGS (12)
  1. SIMVASTATIN [Suspect]
     Indication: ACUTE MYOCARDIAL INFARCTION
     Dosage: 40 MG (40 MG, 1 IN 1 D), ORAL
     Route: 048
     Dates: start: 20110302, end: 20110308
  2. CLOPIDEGREL [Suspect]
     Indication: ACUTE MYOCARDIAL INFARCTION
     Dosage: 75 MG (75 MG, 1 IN 1 D), ORAL
     Route: 048
     Dates: start: 20110303, end: 20110308
  3. ASPIRIN [Concomitant]
  4. RAMIPRIL [Concomitant]
  5. NICOTINAMIDE + RIBOFLAVINE + THIAMINE HYDROCHLORIDE (VITAMIN B COMPOUN [Concomitant]
  6. THIAMINE AND VITAMIN B SUBSTANCES (THIAMINE) [Concomitant]
  7. LEVOTHYROXINE AND THYROXINE (THYROXINE) [Concomitant]
  8. ALLOPURINOL [Concomitant]
  9. FUROSEMIDE [Suspect]
     Indication: ACUTE MYOCARDIAL INFARCTION
     Dosage: 20 MG (20 MG, 1 IN 1 D), ORAL
     Route: 048
     Dates: start: 20110304, end: 20110307
  10. FUROSEMIDE [Suspect]
     Indication: LEFT VENTRICULAR FAILURE
     Dosage: 20 MG (20 MG, 1 IN 1 D), ORAL
     Route: 048
     Dates: start: 20110304, end: 20110307
  11. DIAZEPAM [Concomitant]
  12. BISOPROLOL FUMARATE [Concomitant]

REACTIONS (3)
  - LIVER INJURY [None]
  - LETHARGY [None]
  - ABDOMINAL PAIN UPPER [None]
